FAERS Safety Report 14075073 (Version 3)
Quarter: 2018Q1

REPORT INFORMATION
  Report Type: Report from Study
  Country: US (occurrence: US)
  Receive Date: 20171010
  Receipt Date: 20180302
  Transmission Date: 20180508
  Serious: Yes (Hospitalization)
  Sender: FDA-Public Use
  Company Number: US-ACTELION-A-NJ2017-160633

PATIENT
  Age: 30 Year
  Sex: Female

DRUGS (13)
  1. DEPAKOTE [Concomitant]
     Active Substance: DIVALPROEX SODIUM
     Dosage: UNK
     Route: 048
     Dates: start: 20151223
  2. FYCOMPA [Concomitant]
     Active Substance: PERAMPANEL
     Dosage: UNK, BID
     Route: 048
     Dates: start: 20151223
  3. KEPPRA [Concomitant]
     Active Substance: LEVETIRACETAM
     Dosage: UNK, BID
     Route: 048
     Dates: start: 20151223
  4. VITAMIN D [Concomitant]
     Active Substance: CHOLECALCIFEROL
     Dosage: 1 CAP
     Route: 048
     Dates: start: 20151223
  5. LEVOCARNITINE. [Concomitant]
     Active Substance: LEVOCARNITINE
     Dosage: UNK, BID
     Dates: start: 20151223
  6. VITAMIN B6 [Concomitant]
     Active Substance: PYRIDOXINE HYDROCHLORIDE
     Dosage: 1 TAB, QD
     Route: 048
     Dates: start: 20151223
  7. VIMPAT [Concomitant]
     Active Substance: LACOSAMIDE
     Dosage: UNK, BID
     Dates: start: 20151223
  8. ZONISAMIDE. [Concomitant]
     Active Substance: ZONISAMIDE
     Dosage: UNK, BID
     Dates: start: 20151223
  9. JUNEL FE 1/20 [Concomitant]
     Active Substance: ETHINYL ESTRADIOL\NORETHINDRONE ACETATE
     Dosage: UNK, QD
     Dates: start: 20151223
  10. MULTIVITAMIN [Concomitant]
     Active Substance: VITAMINS
     Dosage: UNK, QD
     Route: 048
     Dates: start: 20151223
  11. ZAVESCA [Suspect]
     Active Substance: MIGLUSTAT
     Indication: GAUCHER^S DISEASE
     Dosage: 100 MG, TID
     Route: 048
     Dates: start: 20151228
  12. KLONOPIN [Concomitant]
     Active Substance: CLONAZEPAM
     Dosage: 0.25 MG, QID
     Route: 048
     Dates: start: 20151223
  13. FAMVIR [Concomitant]
     Active Substance: FAMCICLOVIR
     Dosage: UNK, BID
     Route: 048
     Dates: start: 20151223

REACTIONS (6)
  - Vomiting [Unknown]
  - Failure to thrive [Unknown]
  - Complication associated with device [Unknown]
  - Gastrooesophageal reflux disease [Unknown]
  - Dehydration [Unknown]
  - Food intolerance [Unknown]

NARRATIVE: CASE EVENT DATE: 20171211
